FAERS Safety Report 14517254 (Version 1)
Quarter: 2018Q1

REPORT INFORMATION
  Report Type: Spontaneous
  Country: FR (occurrence: FR)
  Receive Date: 20180212
  Receipt Date: 20180212
  Transmission Date: 20180509
  Serious: Yes (Other)
  Sender: FDA-Public Use
  Company Number: FR-MERCK KGAA-2041774

PATIENT
  Age: 65 Year
  Sex: Female
  Weight: 65 kg

DRUGS (2)
  1. NOVOTHYROX [Suspect]
     Active Substance: LEVOTHYROXINE SODIUM
     Indication: HYPOTHYROIDISM
     Route: 048
     Dates: start: 20170801, end: 20171010
  2. LEVOTHYROX 25 [Suspect]
     Active Substance: LEVOTHYROXINE SODIUM
     Route: 048
     Dates: start: 20170915, end: 20171010

REACTIONS (7)
  - Blood thyroid stimulating hormone normal [Recovered/Resolved]
  - Asthenia [Recovered/Resolved]
  - Dyspepsia [Recovered/Resolved]
  - Alopecia [Recovered/Resolved]
  - Palpitations [Recovered/Resolved]
  - Nausea [Recovered/Resolved]
  - Muscle spasms [Recovered/Resolved]

NARRATIVE: CASE EVENT DATE: 20170815
